FAERS Safety Report 23486414 (Version 1)
Quarter: 2024Q1

REPORT INFORMATION
  Report Type: Spontaneous
  Country: US (occurrence: None)
  Receive Date: 20240205
  Receipt Date: 20240205
  Transmission Date: 20240410
  Serious: Yes (Hospitalization)
  Sender: FDA-Public Use
  Company Number: None

PATIENT
  Age: 36 Year
  Sex: Male
  Weight: 79 kg

DRUGS (5)
  1. ARIPIPRAZOLE [Suspect]
     Active Substance: ARIPIPRAZOLE
     Indication: Intermittent explosive disorder
     Dosage: FREQUENCY : DAILY;?
     Route: 049
     Dates: start: 20231208, end: 20231221
  2. QUETIAPINE [Concomitant]
     Active Substance: QUETIAPINE
     Dates: start: 20230406, end: 20231221
  3. EXCITALOPRAM [Concomitant]
     Dates: start: 20230915, end: 20231221
  4. METOPROLOL [Concomitant]
     Active Substance: METOPROLOL
     Dates: start: 20231002
  5. ATORVASTATIN [Concomitant]
     Active Substance: ATORVASTATIN
     Dates: start: 20231128, end: 20231221

REACTIONS (12)
  - Mental status changes [None]
  - Hallucination, visual [None]
  - Blood pressure increased [None]
  - Blood creatine phosphokinase increased [None]
  - Neuroleptic malignant syndrome [None]
  - Serotonin syndrome [None]
  - Delirium [None]
  - Seizure [None]
  - Extrapyramidal disorder [None]
  - Muscle rigidity [None]
  - Hyperreflexia [None]
  - Malignant catatonia [None]

NARRATIVE: CASE EVENT DATE: 20231221
